FAERS Safety Report 4484900-2 (Version None)
Quarter: 2004Q3

REPORT INFORMATION
  Report Type: 
  Country: None (occurrence: None)
  Receive Date: 20040921
  Receipt Date: 20030904
  Transmission Date: 20050211
  Serious: Yes (Hospitalization)
  Sender: FDA-Public Use
  Company Number: 163-20785-03090108

PATIENT
  Age: 78 Year
  Sex: Male
  Weight: 166.5 kg

DRUGS (18)
  1. THALOMID [Suspect]
     Indication: PROSTATE CANCER METASTATIC
     Dosage: 100 MG, B.I.D., ORAL
     Route: 048
     Dates: start: 20030326, end: 20030902
  2. TAXOTERE [Suspect]
     Indication: PROSTATE CANCER METASTATIC
     Dosage: 200 MG/M2, WEEKLY, INTRAVENOUS
     Route: 042
     Dates: start: 20030319, end: 20031217
  3. ENALAPRIL (ENALAPRIL) [Suspect]
     Indication: HYPERTENSION
     Dosage: 5-10MG, QD
  4. ZITHROMAX [Suspect]
     Indication: BRONCHITIS
     Dates: start: 20031001
  5. AGGRENOX [Concomitant]
  6. CALCIUM (CALCIUM) [Concomitant]
  7. METAMUCIL (PSYLLIUM) [Concomitant]
  8. DECADRON [Concomitant]
  9. QUININE SULFATE (QUININE SULFATE) [Concomitant]
  10. ACETYLSALICYLIC ACID SRT [Concomitant]
  11. PREVACID [Concomitant]
  12. ZOMETA [Concomitant]
  13. AREDIA (PAMIDRONATE DISODIUM) (SOLUTION) [Concomitant]
  14. COUMADIN [Concomitant]
  15. ZOLADEX [Concomitant]
  16. MVI (MULTIVITAMINS) [Concomitant]
  17. LUMIGAN (BIMTOPROST) (EYE DROPS) [Concomitant]
  18. WARFARIN SODIUM [Concomitant]

REACTIONS (15)
  - ARTHRALGIA [None]
  - CONDITION AGGRAVATED [None]
  - DIZZINESS [None]
  - FALL [None]
  - HAEMATOCRIT DECREASED [None]
  - HAEMOGLOBIN DECREASED [None]
  - INJURY [None]
  - LABORATORY TEST ABNORMAL [None]
  - LOSS OF CONSCIOUSNESS [None]
  - ORTHOSTATIC HYPOTENSION [None]
  - PLEURAL EFFUSION [None]
  - SINUS BRADYCARDIA [None]
  - SYNCOPE [None]
  - UPPER RESPIRATORY TRACT INFECTION [None]
  - VENTRICULAR EXTRASYSTOLES [None]
